FAERS Safety Report 21781402 (Version 3)
Quarter: 2023Q1

REPORT INFORMATION
  Report Type: Spontaneous
  Country: US (occurrence: US)
  Receive Date: 20221227
  Receipt Date: 20230207
  Transmission Date: 20230417
  Serious: No
  Sender: FDA-Public Use
  Company Number: US-PFIZER INC-PV202200128190

PATIENT
  Age: 14 Year
  Sex: Female
  Weight: 46.712 kg

DRUGS (1)
  1. GENOTROPIN [Suspect]
     Active Substance: SOMATROPIN
     Dosage: 2.2 MG

REACTIONS (4)
  - Device power source issue [Unknown]
  - Device information output issue [Unknown]
  - Poor quality device used [Unknown]
  - Drug dose omission by device [Unknown]
